FAERS Safety Report 15825863 (Version 1)
Quarter: 2019Q1

REPORT INFORMATION
  Report Type: Spontaneous
  Country: SE (occurrence: SE)
  Receive Date: 20190115
  Receipt Date: 20190115
  Transmission Date: 20190417
  Serious: Yes (Death)
  Sender: FDA-Public Use
  Company Number: SE-PFIZER INC-2019016763

PATIENT
  Age: 46 Year
  Sex: Female

DRUGS (6)
  1. SERTRALINE HCL [Suspect]
     Active Substance: SERTRALINE HYDROCHLORIDE
     Indication: DEPRESSION
     Dosage: 50 MG, DAILY
     Route: 048
     Dates: start: 20180907
  2. NEXPLANON [Concomitant]
     Active Substance: ETONOGESTREL
  3. STILNOCT [Concomitant]
     Active Substance: ZOLPIDEM TARTRATE
     Dosage: 1 DF, DAILY
  4. ATARAX [Concomitant]
     Active Substance: HYDROXYZINE HYDROCHLORIDE
     Dosage: UNK, AS NEEDED
  5. HERMOLEPSIN [Concomitant]
     Dosage: 400 MG, DAILY
  6. NAPROXEN. [Concomitant]
     Active Substance: NAPROXEN
     Dosage: UNK, AS NEEDED

REACTIONS (1)
  - Cerebellar haemorrhage [Fatal]

NARRATIVE: CASE EVENT DATE: 201810
